FAERS Safety Report 7770021-X (Version None)
Quarter: 2011Q3

REPORT INFORMATION
  Report Type: 
  Country: None (occurrence: None)
  Receive Date: 20110922
  Receipt Date: 20100311
  Transmission Date: 20111222
  Serious: No
  Sender: FDA-Public Use
  Company Number: US-ASTRAZENECA-2008UW24464

PATIENT
  Age: 31 Year
  Sex: Male
  Weight: 181.4 kg

DRUGS (25)
  1. SEROQUEL [Suspect]
     Route: 048
     Dates: start: 20040301, end: 20060301
  2. LITHIUM CARBONATE [Concomitant]
     Dates: start: 20040101, end: 20060101
  3. HALDOL [Concomitant]
  4. SYMBYAX [Concomitant]
  5. SEROQUEL [Suspect]
     Route: 048
     Dates: start: 20040301, end: 20060301
  6. SEROQUEL [Suspect]
     Route: 048
     Dates: start: 20040301, end: 20060301
  7. SEROQUEL [Suspect]
     Route: 048
     Dates: end: 20070301
  8. ABILIFY [Concomitant]
  9. BENZTROPINE MES [Concomitant]
     Dosage: 2 M
     Dates: start: 20040204
  10. LITHIUM CARBONATE [Concomitant]
     Indication: BIPOLAR DISORDER
     Dates: start: 19940101, end: 20000101
  11. CITALOPRAM HYDROBROMIDE [Concomitant]
     Indication: BIPOLAR DISORDER
     Dates: start: 20060101
  12. SEROQUEL [Suspect]
     Indication: SCHIZOAFFECTIVE DISORDER
     Route: 048
     Dates: start: 20040107
  13. SEROQUEL [Suspect]
     Indication: BIPOLAR DISORDER
     Route: 048
     Dates: start: 20040107
  14. SEROQUEL [Suspect]
     Indication: BIPOLAR I DISORDER
     Route: 048
     Dates: start: 20040107
  15. STELAZINE [Concomitant]
  16. THIOTHIXENE [Concomitant]
     Dates: start: 20040204
  17. SEROQUEL [Suspect]
     Route: 048
     Dates: end: 20070301
  18. CELEXA [Concomitant]
     Dates: start: 20040204
  19. SEROQUEL [Suspect]
     Route: 048
     Dates: end: 20070301
  20. LITHIUM CARBONATE [Concomitant]
     Indication: SCHIZOPHRENIA
     Dates: start: 19940101, end: 20000101
  21. LEVOXYL [Concomitant]
     Dates: start: 20040112
  22. LITHIUM CARBONATE [Concomitant]
     Dates: start: 20040204
  23. LITHIUM CARBONATE [Concomitant]
     Dates: start: 20040101, end: 20060101
  24. LEXAPRO [Concomitant]
     Indication: DEPRESSION
     Dates: start: 20060101
  25. ZYPREXA [Concomitant]

REACTIONS (7)
  - WEIGHT INCREASED [None]
  - HYPERLIPIDAEMIA [None]
  - CHRONIC OBSTRUCTIVE PULMONARY DISEASE [None]
  - DIABETES MELLITUS [None]
  - MALAISE [None]
  - BLOOD CHOLESTEROL INCREASED [None]
  - GLUCOSE TOLERANCE IMPAIRED [None]
